FAERS Safety Report 9106257 (Version 5)
Quarter: 2013Q3

REPORT INFORMATION
  Report Type: Spontaneous
  Country: US (occurrence: US)
  Receive Date: 20130220
  Receipt Date: 20130919
  Transmission Date: 20140515
  Serious: Yes (Hospitalization, Other)
  Sender: FDA-Public Use
  Company Number: US-009507513-1302USA008081

PATIENT
  Sex: Female
  Weight: 59.86 kg

DRUGS (5)
  1. FOSAMAX [Suspect]
     Indication: OSTEOPOROSIS
     Dosage: 70 MG, QW
     Route: 048
     Dates: start: 1998, end: 2008
  2. ALENDRONATE SODIUM [Suspect]
     Indication: OSTEOPOROSIS
     Dosage: 70 MG, UNK
     Route: 048
     Dates: start: 2008, end: 2010
  3. CALCIUM (UNSPECIFIED) [Concomitant]
     Indication: OSTEOPOROSIS
     Dosage: 1500 MG, QD
  4. VITAMIN D (UNSPECIFIED) [Concomitant]
     Indication: OSTEOPOROSIS
     Dosage: 800 IU, QD
  5. VITAMINS (UNSPECIFIED) [Concomitant]
     Dosage: UNK, QD
     Dates: start: 1992

REACTIONS (33)
  - Femur fracture [Recovering/Resolving]
  - Intramedullary rod insertion [Unknown]
  - Aortic valve replacement [Unknown]
  - Pulmonary oedema [Unknown]
  - Hypotension [Unknown]
  - Urine output decreased [Unknown]
  - Gait disturbance [Unknown]
  - Chondrocalcinosis pyrophosphate [Unknown]
  - Rheumatoid arthritis [Not Recovered/Not Resolved]
  - Hypergammaglobulinaemia benign monoclonal [Unknown]
  - Lumbar vertebral fracture [Unknown]
  - Osteoarthritis [Unknown]
  - Lumbar spinal stenosis [Unknown]
  - Nodal osteoarthritis [Unknown]
  - Upper limb fracture [Unknown]
  - Aortic aneurysm [Unknown]
  - Kyphosis [Unknown]
  - Aortic valve incompetence [Unknown]
  - Spinal osteoarthritis [Unknown]
  - Osteoarthritis [Unknown]
  - Osteopenia [Unknown]
  - Knee deformity [Unknown]
  - Stress fracture [Unknown]
  - Haematocrit decreased [Unknown]
  - Pain in extremity [Unknown]
  - Arthralgia [Unknown]
  - Gastrooesophageal reflux disease [Not Recovered/Not Resolved]
  - Fungal skin infection [Unknown]
  - Asthma [Unknown]
  - Fall [Unknown]
  - Musculoskeletal pain [Unknown]
  - Rib fracture [Unknown]
  - Tooth extraction [Unknown]
